FAERS Safety Report 5345222-0 (Version None)
Quarter: 2007Q2

REPORT INFORMATION
  Report Type: 
  Country: None (occurrence: None)
  Receive Date: 20070423
  Receipt Date: 20060412
  Transmission Date: 20071010
  Serious: Yes (Life-Threatening, Hospitalization, Other)
  Sender: FDA-Public Use
  Company Number: WAES 0604USA02016

PATIENT
  Age: 52 Year
  Sex: Male
  Weight: 113.3993 kg

DRUGS (13)
  1. SINGULAIR [Suspect]
     Indication: HYPERSENSITIVITY
     Dosage: 10 MG/DAILY/PO
     Route: 048
     Dates: start: 20060120
  2. SINGULAIR [Suspect]
     Indication: SINUSITIS
     Dosage: 10 MG/DAILY/PO
     Route: 048
     Dates: start: 20060120
  3. CLINORIL [Suspect]
     Indication: ARTHRITIS
     Dosage: 200 MG/DAILY/PO
     Route: 048
     Dates: end: 20060201
  4. HYDROCHLOROTHIAZIDE [Suspect]
     Indication: HYPERTENSION
     Dosage: 25 MG/DAILY/PO
     Route: 048
     Dates: end: 20060201
  5. ACCUPRIL [Concomitant]
  6. ACCUPRIL [Concomitant]
  7. ADVAIR DISKUS 100/50 [Concomitant]
  8. ALLEGRA [Concomitant]
  9. ASTELIN [Concomitant]
  10. AUGMENTIN '125' [Concomitant]
  11. LIPITOR [Concomitant]
  12. RHINOCORT [Concomitant]
  13. ALBUTEROL [Concomitant]

REACTIONS (3)
  - PANCREATITIS [None]
  - POSTNASAL DRIP [None]
  - SINUSITIS [None]
